FAERS Safety Report 18555292 (Version 1)
Quarter: 2020Q4

REPORT INFORMATION
  Report Type: Spontaneous
  Country: ES (occurrence: ES)
  Receive Date: 20201127
  Receipt Date: 20201127
  Transmission Date: 20210114
  Serious: Yes (Hospitalization)
  Sender: FDA-Public Use
  Company Number: ES-B.I. PHARMACEUTICALS,INC./RIDGEFIELD-2020-BI-063618

PATIENT
  Age: 63 Year
  Sex: Male
  Weight: 120 kg

DRUGS (1)
  1. JARDIANCE [Suspect]
     Active Substance: EMPAGLIFLOZIN
     Indication: DIABETES MELLITUS
     Route: 048
     Dates: start: 2020, end: 20201026

REACTIONS (1)
  - Leg amputation [Recovering/Resolving]

NARRATIVE: CASE EVENT DATE: 20201022
